FAERS Safety Report 7982745-X (Version None)
Quarter: 2011Q4

REPORT INFORMATION
  Report Type: 
  Country: None (occurrence: None)
  Receive Date: 20111215
  Receipt Date: 20111208
  Transmission Date: 20120403
  Serious: Yes (Other)
  Sender: FDA-Public Use
  Company Number: US-ROCHE-794397

PATIENT
  Sex: Female
  Weight: 75.364 kg

DRUGS (2)
  1. ACCUTANE [Suspect]
     Indication: ACNE
     Route: 065
     Dates: start: 19980610, end: 19980711
  2. TRIPHASIL-21 [Concomitant]
     Indication: CONTRACEPTION

REACTIONS (6)
  - COLITIS [None]
  - COLITIS ULCERATIVE [None]
  - INFLAMMATORY BOWEL DISEASE [None]
  - STRESS [None]
  - ANXIETY [None]
  - IRRITABLE BOWEL SYNDROME [None]
